FAERS Safety Report 5986111-8 (Version None)
Quarter: 2008Q4

REPORT INFORMATION
  Report Type: 
  Country: None (occurrence: None)
  Receive Date: 20081209
  Receipt Date: 20081202
  Transmission Date: 20090506
  Serious: Yes (Hospitalization)
  Sender: FDA-Public Use
  Company Number: US-BAYER-200839839NA

PATIENT
  Age: 21 Year
  Sex: Male

DRUGS (1)
  1. AVELOX [Suspect]
     Indication: UNEVALUABLE EVENT
     Dates: start: 20081001, end: 20081101

REACTIONS (1)
  - LUNG ABSCESS [None]
